FAERS Safety Report 16219247 (Version 1)
Quarter: 2019Q2

REPORT INFORMATION
  Report Type: Spontaneous
  Country: PL (occurrence: PL)
  Receive Date: 20190419
  Receipt Date: 20190419
  Transmission Date: 20190711
  Serious: Yes (Other)
  Sender: FDA-Public Use
  Company Number: PHHY2019PL088230

PATIENT
  Age: 52 Year
  Sex: Female

DRUGS (5)
  1. DOCETAXEL. [Suspect]
     Active Substance: DOCETAXEL
     Indication: BREAST CANCER METASTATIC
     Dosage: UNK
     Route: 065
  2. DOXORUBICIN [Suspect]
     Active Substance: DOXORUBICIN
     Indication: BREAST CANCER METASTATIC
     Dosage: UNK (4 CYCLES)
     Route: 065
  3. TAMOXIFEN [Suspect]
     Active Substance: TAMOXIFEN
     Indication: BREAST CANCER METASTATIC
     Dosage: UNK (4 CYCLES)
     Route: 065
  4. CYCLOPHOSPHAMIDE. [Suspect]
     Active Substance: CYCLOPHOSPHAMIDE
     Indication: BREAST CANCER METASTATIC
     Dosage: UNK (4 CYCLES)
     Route: 065
  5. ANASTROZOL [Suspect]
     Active Substance: ANASTROZOLE
     Indication: BREAST CANCER RECURRENT
     Dosage: UNK
     Route: 065

REACTIONS (4)
  - Breast cancer recurrent [Unknown]
  - Metastases to bone [Unknown]
  - Musculoskeletal chest pain [Unknown]
  - Bone pain [Unknown]

NARRATIVE: CASE EVENT DATE: 201901
